FAERS Safety Report 4928177-X (Version None)
Quarter: 2006Q1

REPORT INFORMATION
  Report Type: 
  Country: None (occurrence: None)
  Receive Date: 20060223
  Receipt Date: 20060201
  Transmission Date: 20060701
  Serious: Yes (Other)
  Sender: FDA-Public Use
  Company Number: DE200601005247

PATIENT
  Age: 92 Year
  Sex: Female

DRUGS (6)
  1. CYMBALTA [Suspect]
     Indication: DEPRESSION
     Dosage: 30 MG, 2/D, ORAL
     Route: 048
     Dates: start: 20051101
  2. MEMANTINE HCL [Concomitant]
  3. TILIDINE (TILIDINE) [Concomitant]
  4. DIMENHYDRINATE [Concomitant]
  5. OMEPRAZOLE [Concomitant]
  6. LANITOP (METILDIGOXIN) [Concomitant]

REACTIONS (2)
  - CEREBRAL ISCHAEMIA [None]
  - LOSS OF CONSCIOUSNESS [None]
